FAERS Safety Report 7202499-4 (Version None)
Quarter: 2010Q4

REPORT INFORMATION
  Report Type: 
  Country: None (occurrence: None)
  Receive Date: 20101229
  Receipt Date: 20101223
  Transmission Date: 20110411
  Serious: Yes (Death)
  Sender: FDA-Public Use
  Company Number: PHHY2010ES88297

PATIENT
  Age: 53 Year
  Sex: Female

DRUGS (3)
  1. FLUOROURACILO FERRER FARMA [Suspect]
     Indication: RECTAL CANCER
     Dosage: 50 MG/ML
  2. ERBITUX [Suspect]
     Indication: RECTAL CANCER
     Dosage: 2 MG/ML
     Dates: start: 20100723, end: 20101015
  3. OXALOPLATINO HOSPIRA [Suspect]
     Indication: RECTAL CANCER
     Dosage: UNK
     Dates: start: 20100723, end: 20101015

REACTIONS (2)
  - NEUTROPENIA [None]
  - SEPSIS [None]
